FAERS Safety Report 9799399 (Version 1)
Quarter: 2014Q1

REPORT INFORMATION
  Report Type: Spontaneous
  Country: US (occurrence: None)
  Receive Date: 20140103
  Receipt Date: 20140103
  Transmission Date: 20141002
  Serious: Yes (Death)
  Sender: FDA-Public Use
  Company Number: None

PATIENT
  Age: 53 Year
  Sex: Male

DRUGS (2)
  1. NEXAVAR 200 MG BAYER [Suspect]
     Indication: LEUKAEMIA
     Route: 048
     Dates: start: 20131029
  2. NEUPOGEN [Suspect]
     Route: 058
     Dates: start: 20130708

REACTIONS (1)
  - Leukaemia [None]
